FAERS Safety Report 17202696 (Version 1)
Quarter: 2019Q4

REPORT INFORMATION
  Report Type: Spontaneous
  Country: US (occurrence: US)
  Receive Date: 20191226
  Receipt Date: 20191226
  Transmission Date: 20200122
  Serious: Yes (Other)
  Sender: FDA-Public Use
  Company Number: NVSC2019US014998

PATIENT

DRUGS (1)
  1. KYMRIAH [Suspect]
     Active Substance: TISAGENLECLEUCEL
     Indication: NON-HODGKIN^S LYMPHOMA
     Dosage: (1 DOSE 2.4 X 10E8 CAR POSITIVE VIABLE T-CELLS)
     Route: 065

REACTIONS (2)
  - Product use in unapproved indication [Unknown]
  - Non-Hodgkin^s lymphoma recurrent [Unknown]
